FAERS Safety Report 24063082 (Version 2)
Quarter: 2024Q3

REPORT INFORMATION
  Report Type: Spontaneous
  Country: ES (occurrence: ES)
  Receive Date: 20240709
  Receipt Date: 20240730
  Transmission Date: 20241017
  Serious: Yes (Hospitalization, Other)
  Sender: SANOFI AVENTIS
  Company Number: None

PATIENT
  Age: 34 Year
  Sex: Female

DRUGS (19)
  1. LEMTRADA [Suspect]
     Active Substance: ALEMTUZUMAB
     Indication: T-cell chronic lymphocytic leukaemia
     Dosage: 3 MG
     Route: 042
     Dates: start: 20220217, end: 20220217
  2. LEMTRADA [Suspect]
     Active Substance: ALEMTUZUMAB
     Dosage: 10 MG
     Route: 042
     Dates: start: 20220301, end: 20220301
  3. LEMTRADA [Suspect]
     Active Substance: ALEMTUZUMAB
     Dosage: 10 MG, BIW
     Route: 042
     Dates: start: 20220309
  4. LEMTRADA [Suspect]
     Active Substance: ALEMTUZUMAB
     Dosage: 10 MG, BIW
     Route: 042
     Dates: start: 20220316
  5. LEMTRADA [Suspect]
     Active Substance: ALEMTUZUMAB
     Dosage: 10 MG, BIW
     Route: 042
     Dates: start: 20220323
  6. LEMTRADA [Suspect]
     Active Substance: ALEMTUZUMAB
     Dosage: 10 MG, QW
     Route: 042
     Dates: start: 20220330
  7. LEMTRADA [Suspect]
     Active Substance: ALEMTUZUMAB
     Dosage: 10 MG, QW
     Route: 042
     Dates: start: 20220406
  8. VEDOLIZUMAB [Concomitant]
     Active Substance: VEDOLIZUMAB
     Indication: Gastroenteritis
     Dosage: UNK
     Dates: start: 202304
  9. INFLIXIMAB [Concomitant]
     Active Substance: INFLIXIMAB
     Indication: Gastroenteritis
     Dosage: UNK
  10. PREDNISONE [Concomitant]
     Active Substance: PREDNISONE
     Indication: Gastroenteritis
     Dosage: UNK
  11. PREDNISONE [Concomitant]
     Active Substance: PREDNISONE
     Dosage: 10 MG
  12. UPADACITINIB [Concomitant]
     Active Substance: UPADACITINIB
     Indication: Gastroenteritis
     Dosage: 45 MG
     Dates: start: 20240517
  13. MYCOPHENOLATE MOFETIL [Concomitant]
     Active Substance: MYCOPHENOLATE MOFETIL
     Indication: Gastroenteritis
     Dosage: 1.5 G
  14. MYCOPHENOLATE MOFETIL [Concomitant]
     Active Substance: MYCOPHENOLATE MOFETIL
     Indication: Autoimmune hepatitis
     Dosage: UNK
  15. SULFAMETHOXAZOLE\TRIMETHOPRIM [Concomitant]
     Active Substance: SULFAMETHOXAZOLE\TRIMETHOPRIM
     Indication: Gastroenteritis
     Dosage: UNK UNK, TIW
  16. CALCIUM CARBONATE\CHOLECALCIFEROL [Concomitant]
     Active Substance: CALCIUM CARBONATE\CHOLECALCIFEROL
     Dosage: UNK
  17. TACROLIMUS [Concomitant]
     Active Substance: TACROLIMUS
     Indication: Gastroenteritis
     Dosage: UNK
  18. FLUCONAZOLE [Concomitant]
     Active Substance: FLUCONAZOLE
     Indication: Oesophageal candidiasis
     Dosage: UNK
  19. AZATHIOPRINE [Concomitant]
     Active Substance: AZATHIOPRINE
     Indication: Autoimmune hepatitis
     Dosage: UNK

REACTIONS (4)
  - Colitis microscopic [Not Recovered/Not Resolved]
  - Immune-mediated arthritis [Not Recovered/Not Resolved]
  - Product use in unapproved indication [Unknown]
  - Incorrect dosage administered [Unknown]

NARRATIVE: CASE EVENT DATE: 20220217
